FAERS Safety Report 13388067 (Version 1)
Quarter: 2017Q1

REPORT INFORMATION
  Report Type: Spontaneous
  Country: US (occurrence: US)
  Receive Date: 20170330
  Receipt Date: 20170330
  Transmission Date: 20170429
  Serious: No
  Sender: FDA-Public Use
  Company Number: US-BRACCO-013960

PATIENT
  Age: 15 Year
  Sex: Male

DRUGS (1)
  1. GASTROGRAFIN [Suspect]
     Active Substance: DIATRIZOATE MEGLUMINE\DIATRIZOATE SODIUM
     Indication: COMPUTERISED TOMOGRAM ABDOMEN
     Route: 042
     Dates: start: 20160913, end: 20160913

REACTIONS (2)
  - Incorrect route of drug administration [Unknown]
  - No adverse event [Unknown]

NARRATIVE: CASE EVENT DATE: 20160913
